FAERS Safety Report 9023390 (Version 1)
Quarter: 2013Q1

REPORT INFORMATION
  Report Type: Spontaneous
  Country: CA (occurrence: CA)
  Receive Date: 20130121
  Receipt Date: 20130121
  Transmission Date: 20140127
  Serious: Yes (Other)
  Sender: FDA-Public Use
  Company Number: CA-BAXTER-2013BAX002620

PATIENT
  Sex: Female

DRUGS (4)
  1. HEPARIN SODIUM [Suspect]
     Indication: ANGIOPLASTY
     Dosage: 2000 UNITS
     Route: 042
  2. HEPARIN SODIUM [Suspect]
     Dosage: 3000 UNITS
     Route: 042
  3. ASPIRIN [Concomitant]
     Indication: PRODUCT USED FOR UNKNOWN INDICATION
     Route: 065
  4. CLOPIDOGREL [Concomitant]
     Indication: PRODUCT USED FOR UNKNOWN INDICATION
     Route: 065

REACTIONS (4)
  - Device occlusion [Recovered/Resolved]
  - Thrombocytopenia [Recovered/Resolved]
  - Thrombosis [Recovered/Resolved]
  - Hemiparesis [Recovered/Resolved]
